FAERS Safety Report 23430124 (Version 5)
Quarter: 2024Q1

REPORT INFORMATION
  Report Type: Report from Study
  Country: JP (occurrence: JP)
  Receive Date: 20240122
  Receipt Date: 20240326
  Transmission Date: 20240410
  Serious: Yes (Other)
  Sender: FDA-Public Use
  Company Number: JP-JNJFOC-20240127608

PATIENT
  Age: 79 Year
  Sex: Male
  Weight: 57.5 kg

DRUGS (3)
  1. ERLEADA [Suspect]
     Active Substance: APALUTAMIDE
     Indication: Prostate cancer metastatic
     Route: 048
     Dates: start: 20231223, end: 20240105
  2. ERLEADA [Suspect]
     Active Substance: APALUTAMIDE
     Indication: Prostate cancer metastatic
     Route: 048
     Dates: start: 20240203
  3. BUFFERIN [ACETYLSALICYLIC ACID] [Concomitant]
     Indication: Nausea
     Dosage: DOSE UNKNOWN, P.R.N
     Route: 048

REACTIONS (24)
  - Blood pressure increased [Recovering/Resolving]
  - Diabetes mellitus [Not Recovered/Not Resolved]
  - Asthenopia [Not Recovered/Not Resolved]
  - Nausea [Not Recovered/Not Resolved]
  - Tremor [Recovering/Resolving]
  - Chills [Recovering/Resolving]
  - Musculoskeletal stiffness [Not Recovered/Not Resolved]
  - Malaise [Recovering/Resolving]
  - Palpitations [Recovering/Resolving]
  - Lung opacity [Not Recovered/Not Resolved]
  - Insomnia [Recovering/Resolving]
  - Restlessness [Recovering/Resolving]
  - Dysphonia [Not Recovered/Not Resolved]
  - Thirst [Not Recovered/Not Resolved]
  - Dizziness [Recovering/Resolving]
  - Pruritus [Recovered/Resolved]
  - Rash [Not Recovered/Not Resolved]
  - Pain [Not Recovered/Not Resolved]
  - Somnolence [Not Recovered/Not Resolved]
  - Asthenia [Recovering/Resolving]
  - Dysphagia [Recovered/Resolved]
  - Treatment noncompliance [Recovered/Resolved]
  - Fall [Recovered/Resolved]
  - Hypoaesthesia [Not Recovered/Not Resolved]

NARRATIVE: CASE EVENT DATE: 20240101
